FAERS Safety Report 6146221-1 (Version None)
Quarter: 2009Q2

REPORT INFORMATION
  Report Type: 
  Country: None (occurrence: None)
  Receive Date: 20090407
  Receipt Date: 20090403
  Transmission Date: 20091009
  Serious: Yes (Life-Threatening, Hospitalization, Other)
  Sender: FDA-Public Use
  Company Number: PHHY2008JP16367

PATIENT
  Sex: Female
  Weight: 48 kg

DRUGS (5)
  1. VOLTAREN [Suspect]
     Indication: ANTIPYRESIS
     Dosage: UNK
     Route: 054
     Dates: start: 20071013, end: 20071015
  2. CEFZON [Suspect]
     Indication: NASOPHARYNGITIS
     Dosage: 300 MG, UNK
     Route: 048
     Dates: start: 20071013, end: 20071015
  3. CEFZON [Suspect]
     Indication: PYREXIA
  4. PL(NON-PYRINE COLD PREPARATION) [Suspect]
     Indication: NASOPHARYNGITIS
     Dosage: 3 G, UNK
     Route: 048
     Dates: start: 20071013, end: 20071015
  5. PL(NON-PYRINE COLD PREPARATION) [Suspect]
     Indication: PYREXIA

REACTIONS (31)
  - BIOPSY SKIN [None]
  - BLISTER [None]
  - CONJUNCTIVAL HYPERAEMIA [None]
  - DRUG ERUPTION [None]
  - ENDOTRACHEAL INTUBATION [None]
  - ERYTHEMA [None]
  - ERYTHEMA OF EYELID [None]
  - EXCORIATION [None]
  - EYE DISCHARGE [None]
  - EYELID OEDEMA [None]
  - GLOSSODYNIA [None]
  - HAEMATURIA [None]
  - LIP SWELLING [None]
  - LUNG DISORDER [None]
  - LYMPHOCYTIC INFILTRATION [None]
  - METAPLASIA [None]
  - MUCOSAL EROSION [None]
  - NEUTROPHIL FUNCTION DISORDER [None]
  - OEDEMA [None]
  - PNEUMONIA [None]
  - PYREXIA [None]
  - RASH [None]
  - RASH PUSTULAR [None]
  - RESPIRATORY DISORDER [None]
  - SCAB [None]
  - SKIN DISORDER [None]
  - SKIN EXFOLIATION [None]
  - SKIN NECROSIS [None]
  - SWOLLEN TONGUE [None]
  - TOXIC EPIDERMAL NECROLYSIS [None]
  - VULVAL DISORDER [None]
